FAERS Safety Report 13555799 (Version 3)
Quarter: 2017Q3

REPORT INFORMATION
  Report Type: Report from Study
  Country: US (occurrence: US)
  Receive Date: 20170517
  Receipt Date: 20170807
  Transmission Date: 20171127
  Serious: Yes (Hospitalization)
  Sender: FDA-Public Use
  Company Number: US-ACADIA PHARMACEUTICALS INC.-ACA-2017-002327

PATIENT
  Age: 86 Year
  Sex: Male
  Weight: 78.5 kg

DRUGS (4)
  1. NUPLAZID [Suspect]
     Active Substance: PIMAVANSERIN TARTRATE
     Indication: PARKINSON^S DISEASE PSYCHOSIS
     Dosage: 17 MG, QD
     Route: 048
     Dates: start: 20170213, end: 201702
  2. SYNTHROID [Concomitant]
     Active Substance: LEVOTHYROXINE SODIUM
     Indication: PRODUCT USED FOR UNKNOWN INDICATION
  3. NUPLAZID [Suspect]
     Active Substance: PIMAVANSERIN TARTRATE
     Indication: HALLUCINATION
  4. NUPLAZID [Suspect]
     Active Substance: PIMAVANSERIN TARTRATE
     Indication: DELUSION
     Dosage: 34 MG, QD
     Route: 048
     Dates: start: 201702

REACTIONS (7)
  - Mouth haemorrhage [Unknown]
  - Drug effect incomplete [Not Recovered/Not Resolved]
  - Drooling [Not Recovered/Not Resolved]
  - Salivary hypersecretion [Unknown]
  - Asthenia [Unknown]
  - Fatigue [Recovered/Resolved]
  - Lethargy [Unknown]

NARRATIVE: CASE EVENT DATE: 20170214
